FAERS Safety Report 5072703-X (Version None)
Quarter: 2006Q3

REPORT INFORMATION
  Report Type: 
  Country: None (occurrence: None)
  Receive Date: 20060801
  Receipt Date: 20060717
  Transmission Date: 20061208
  Serious: No
  Sender: FDA-Public Use
  Company Number: DEU-2006-0002368

PATIENT
  Age: 45 Year
  Sex: Female

DRUGS (6)
  1. MORPHINE SULFATE [Suspect]
     Indication: BACK PAIN
     Dosage: INTRATHECAL
     Route: 037
  2. CLONAZEPAM [Concomitant]
  3. FLUOXETINE [Concomitant]
  4. DICLOFENAC (DICLOFENAC) [Concomitant]
  5. IBUPROFEN [Concomitant]
  6. HEPARIN [Concomitant]

REACTIONS (4)
  - HAEMATOMA [None]
  - INJECTION SITE MASS [None]
  - PARAPARESIS [None]
  - SPINAL CORD COMPRESSION [None]
